FAERS Safety Report 8172724 (Version 3)
Quarter: 2013Q3

REPORT INFORMATION
  Report Type: Spontaneous
  Country: US (occurrence: None)
  Receive Date: 20110927
  Receipt Date: 20130725
  Transmission Date: 20140515
  Serious: Yes (Other)
  Sender: FDA-Public Use
  Company Number: JPI-P-017019

PATIENT
  Age: 38 Year
  Sex: Female
  Weight: 81.65 kg

DRUGS (3)
  1. XYREM [Suspect]
     Indication: CATAPLEXY
     Dosage: (2.25 GM, 2 IN 1 D) ORAL
     Route: 048
     Dates: start: 201102, end: 2011
  2. LAMOTRIGINE [Concomitant]
  3. LEVETIRACETAM [Concomitant]

REACTIONS (4)
  - Convulsion [None]
  - Convulsion [None]
  - Confusional state [None]
  - Memory impairment [None]
